FAERS Safety Report 6941971-9 (Version None)
Quarter: 2010Q3

REPORT INFORMATION
  Report Type: 
  Country: None (occurrence: None)
  Receive Date: 20100826
  Receipt Date: 20100812
  Transmission Date: 20110219
  Serious: Yes (Other)
  Sender: FDA-Public Use
  Company Number: PHHY2010US53480

PATIENT

DRUGS (2)
  1. EXJADE [Suspect]
     Dosage: UNK
  2. SUCRALFATE [Suspect]

REACTIONS (1)
  - ULCER [None]
